FAERS Safety Report 9258413 (Version 1)
Quarter: 2013Q2

REPORT INFORMATION
  Report Type: Spontaneous
  Country: US (occurrence: US)
  Receive Date: 20130426
  Receipt Date: 20130426
  Transmission Date: 20140414
  Serious: No
  Sender: FDA-Public Use
  Company Number: US-PFIZER INC-2013130579

PATIENT
  Sex: Male

DRUGS (1)
  1. RELPAX [Suspect]
     Dosage: 40 MG, UNK

REACTIONS (1)
  - Dysphagia [Unknown]
